FAERS Safety Report 21558006 (Version 1)
Quarter: 2022Q4

REPORT INFORMATION
  Report Type: Spontaneous
  Country: US (occurrence: US)
  Receive Date: 20221106
  Receipt Date: 20221106
  Transmission Date: 20230112
  Serious: No
  Sender: FDA-Public Use
  Company Number: US-REDHILL-2022RDH00096

PATIENT
  Age: 82 Year
  Sex: Male
  Weight: 75.283 kg

DRUGS (2)
  1. MOVANTIK [Suspect]
     Active Substance: NALOXEGOL OXALATE
     Indication: Constipation
     Dosage: 25 MG, 1X/DAY IN THE MORNING ABOUT AN HOUR BEFORE HIS MEAL
     Route: 048
     Dates: start: 202111
  2. HYDROCODONE [Concomitant]
     Active Substance: HYDROCODONE
     Dosage: UNK
     Dates: end: 20220509

REACTIONS (2)
  - Off label use [Not Recovered/Not Resolved]
  - Drug ineffective [Not Recovered/Not Resolved]

NARRATIVE: CASE EVENT DATE: 20220201
